FAERS Safety Report 5894099-3 (Version None)
Quarter: 2008Q3

REPORT INFORMATION
  Report Type: 
  Country: None (occurrence: None)
  Receive Date: 20080923
  Receipt Date: 20080527
  Transmission Date: 20090109
  Serious: Yes (Other)
  Sender: FDA-Public Use
  Company Number: US-ASTRAZENECA-2008AC01366

PATIENT
  Age: 13 Year
  Sex: Female

DRUGS (3)
  1. QUETIAPINE FUMARATE [Suspect]
     Dosage: 25 MG BID AND 150 MG AT BEDTIME.
     Route: 048
  2. OLANZAPINE [Suspect]
     Route: 048
  3. CHLORPROMAZINE [Suspect]
     Route: 030

REACTIONS (1)
  - NEUROLEPTIC MALIGNANT SYNDROME [None]
